FAERS Safety Report 4523967-X (Version None)
Quarter: 2004Q4

REPORT INFORMATION
  Report Type: 
  Country: None (occurrence: None)
  Receive Date: 20041210
  Receipt Date: 20040303
  Transmission Date: 20050328
  Serious: Yes (Disabling, Congenital Anomaly)
  Sender: FDA-Public Use
  Company Number: FR-ABBOTT-04P-056-0252109-00

PATIENT
  Age: 1 Day

DRUGS (3)
  1. DEPAKENE [Suspect]
     Route: 064
  2. EPIPROPANE [Suspect]
     Route: 064
  3. CARBAMAZEPINE [Suspect]
     Route: 064

REACTIONS (6)
  - AUTISM [None]
  - CONGENITAL FOOT MALFORMATION [None]
  - DRUG EXPOSURE DURING PREGNANCY [None]
  - FACIAL DYSMORPHISM [None]
  - FOETAL VALPROATE SYNDROME [None]
  - MENTAL RETARDATION SEVERITY UNSPECIFIED [None]
